FAERS Safety Report 8793387 (Version 1)
Quarter: 2012Q4

REPORT INFORMATION
  Report Type: 
  Country: US (occurrence: US)
  Receive Date: 20120917
  Receipt Date: 20120917
  Transmission Date: 20130627
  Serious: Yes (Other)
  Sender: FDA-Public Use
  Company Number: US-PFIZER INC-2012220354

PATIENT
  Age: 65 Year
  Sex: Female
  Weight: 86 kg

DRUGS (4)
  1. PREMARIN [Suspect]
     Indication: HORMONE REPLACEMENT THERAPY
     Dosage: 0.3 mg, 1x/day
     Route: 048
     Dates: start: 1991
  2. PANTOPRAZOLE [Suspect]
     Indication: GASTROINTESTINAL ULCER
     Dosage: 40 mg, 1x/day
     Route: 048
  3. IMITREX [Concomitant]
     Indication: MIGRAINE
     Dosage: UNK
  4. ESTRATEST [Concomitant]
     Dosage: UNK

REACTIONS (3)
  - Herpes zoster [Recovered/Resolved]
  - Oropharyngeal pain [Unknown]
  - Ulcer [Unknown]
